FAERS Safety Report 9827737 (Version 1)
Quarter: 2013Q4

REPORT INFORMATION
  Report Type: Spontaneous
  Country: US (occurrence: None)
  Receive Date: 20131120
  Receipt Date: 20131120
  Transmission Date: 20140711
  Serious: Yes (Other)
  Sender: FDA-Public Use
  Company Number: 1000047485

PATIENT
  Age: 50 Year
  Sex: Female

DRUGS (5)
  1. VIIBRYD [Suspect]
     Indication: DYSPHEMIA
     Dosage: 1 IN 1 D
     Route: 048
     Dates: start: 20130716, end: 20130722
  2. DIAZEPAM (DIAZEPAM) (DIAZEPAM) [Concomitant]
  3. EXCEDRIN (ACETOMINOPHEN/ASPIRIN/CAFFEINE) (ACETAMINOPHEN/ASPIRIN/CAFFEINE) [Concomitant]
  4. SYNTHROID (LEVOTHYROXINE SODIUM) (LEVOTHYROXINE SODIUM) [Concomitant]
  5. TRIAMTERENE/HYDROCHLOROTHIAZIDE (TRIAMTERENE/HYDROCHLOROTHIAZIDE) (TRIAMTERENE/HYDROCHLOROTHIAZIDE) [Concomitant]

REACTIONS (6)
  - Depression [None]
  - Anxiety [None]
  - Lethargy [None]
  - Vision blurred [None]
  - Somnolence [None]
  - Off label use [None]
